FAERS Safety Report 7782440-6 (Version None)
Quarter: 2011Q3

REPORT INFORMATION
  Report Type: 
  Country: None (occurrence: None)
  Receive Date: 20110928
  Receipt Date: 20110919
  Transmission Date: 20111222
  Serious: Yes (Hospitalization)
  Sender: FDA-Public Use
  Company Number: NL-BIOGENIDEC-2011BI014795

PATIENT
  Age: 65 Year
  Sex: Female

DRUGS (2)
  1. CARBAMAZEPINE [Concomitant]
     Indication: PAIN
  2. TYSABRI [Suspect]
     Indication: MULTIPLE SCLEROSIS
     Route: 042
     Dates: start: 20080627

REACTIONS (3)
  - JOINT DISLOCATION [None]
  - FALL [None]
  - HIP FRACTURE [None]
